FAERS Safety Report 21746442 (Version 1)
Quarter: 2022Q4

REPORT INFORMATION
  Report Type: Spontaneous
  Country: FR (occurrence: FR)
  Receive Date: 20221219
  Receipt Date: 20221219
  Transmission Date: 20230113
  Serious: Yes (Hospitalization, Other)
  Sender: FDA-Public Use
  Company Number: FR-WOCKHARDT BIO AG-2022WBA000225

PATIENT

DRUGS (1)
  1. AMOXICILLIN TRIHYDRATE [Suspect]
     Active Substance: AMOXICILLIN
     Indication: Drug provocation test
     Dosage: 32 MG/KG
     Route: 048

REACTIONS (1)
  - Enterocolitis [Recovered/Resolved]
